FAERS Safety Report 4504868-X (Version None)
Quarter: 2004Q4

REPORT INFORMATION
  Report Type: 
  Country: None (occurrence: None)
  Receive Date: 20040928
  Receipt Date: 20040615
  Transmission Date: 20050328
  Serious: No
  Sender: FDA-Public Use
  Company Number: 04P-163-0263832-00

PATIENT
  Age: 39 Year
  Sex: Female
  Weight: 104.3273 kg

DRUGS (8)
  1. HUMIRA [Suspect]
     Indication: RHEUMATOID ARTHRITIS
     Dosage: 40 MG, 1 IN 2 WK, SUBCUTANEOUS
     Route: 058
     Dates: start: 20040301
  2. HYDROXYCHLOROQUINE PHOSPHATE [Concomitant]
  3. BENAZEPRIL HCL [Concomitant]
  4. NORETHINDRONE ACETATE AND ETHINYL ESTRADIOL [Concomitant]
  5. PROPRANOLOL [Concomitant]
  6. HYDROCODONE [Concomitant]
  7. IBUPROFEN [Concomitant]
  8. DIPHENHYDRAMINE HCL [Concomitant]

REACTIONS (2)
  - INJECTION SITE ERYTHEMA [None]
  - INJECTION SITE SWELLING [None]
